FAERS Safety Report 12237089 (Version 1)
Quarter: 2016Q2

REPORT INFORMATION
  Report Type: Other
  Country: UA (occurrence: UA)
  Receive Date: 20160405
  Receipt Date: 20160405
  Transmission Date: 20160815
  Serious: Yes (Hospitalization)
  Sender: FDA-Public Use
  Company Number: UA-CIPLA LTD.-2016UA03242

PATIENT

DRUGS (12)
  1. RIFAMPICINUM [Suspect]
     Active Substance: RIFAMPIN
     Indication: MYCOBACTERIAL INFECTION
  2. ISONIAZIDUM [Suspect]
     Active Substance: ISONIAZID
     Indication: HIV INFECTION
     Dosage: UNK
     Route: 065
     Dates: start: 20090219
  3. EFAVIRENZ [Suspect]
     Active Substance: EFAVIRENZ
     Indication: MYCOBACTERIAL INFECTION
  4. BISEPTOL [Suspect]
     Active Substance: SULFAMETHOXAZOLE\TRIMETHOPRIM
     Indication: MYCOBACTERIAL INFECTION
  5. LAMIVUDINE/ZIDOVUDINE [Suspect]
     Active Substance: LAMIVUDINE\ZIDOVUDINE
     Indication: HIV INFECTION
     Dosage: 1 TABLET, BID
     Route: 048
     Dates: start: 20090114
  6. BISEPTOL [Suspect]
     Active Substance: SULFAMETHOXAZOLE\TRIMETHOPRIM
     Indication: HIV INFECTION
     Dosage: UNK
     Route: 065
     Dates: start: 20090217
  7. LAMIVUDINE/ZIDOVUDINE [Suspect]
     Active Substance: LAMIVUDINE\ZIDOVUDINE
     Indication: MYCOBACTERIAL INFECTION
  8. EFAVIRENZ [Suspect]
     Active Substance: EFAVIRENZ
     Indication: HIV INFECTION
     Dosage: 600 MG, QD
     Route: 048
     Dates: start: 20090114
  9. RIFAMPICINUM [Suspect]
     Active Substance: RIFAMPIN
     Indication: HIV INFECTION
     Dosage: UNK
     Route: 065
     Dates: start: 20090219
  10. DARSIL [Suspect]
     Active Substance: SILIBININ
     Indication: HIV INFECTION
     Dosage: UNK
     Route: 065
     Dates: start: 20090217
  11. ISONIAZIDUM [Suspect]
     Active Substance: ISONIAZID
     Indication: MYCOBACTERIAL INFECTION
  12. DARSIL [Suspect]
     Active Substance: SILIBININ
     Indication: MYCOBACTERIAL INFECTION

REACTIONS (1)
  - Anaemia [Recovered/Resolved]

NARRATIVE: CASE EVENT DATE: 20090413
